FAERS Safety Report 5194266-0 (Version None)
Quarter: 2006Q4

REPORT INFORMATION
  Report Type: 
  Country: None (occurrence: None)
  Receive Date: 20061228
  Receipt Date: 20061004
  Transmission Date: 20070319
  Serious: Yes (Other)
  Sender: FDA-Public Use
  Company Number: FR-PFIZER INC-2006121848

PATIENT
  Sex: Female
  Weight: 60 kg

DRUGS (4)
  1. TAHOR [Suspect]
     Indication: HYPERCHOLESTEROLAEMIA
     Route: 048
     Dates: start: 20020101, end: 20061002
  2. TRAMADOL HCL [Concomitant]
     Dosage: DAILY DOSE:200MG
     Route: 048
  3. DIACEREIN [Concomitant]
  4. OMEPRAZOLE [Concomitant]
     Indication: HIATUS HERNIA
     Route: 048

REACTIONS (2)
  - TEMPORAL ARTERITIS [None]
  - TENDONITIS [None]
